FAERS Safety Report 15766412 (Version 4)
Quarter: 2022Q2

REPORT INFORMATION
  Report Type: Spontaneous
  Country: US (occurrence: US)
  Receive Date: 20181227
  Receipt Date: 20220419
  Transmission Date: 20220721
  Serious: No
  Sender: FDA-Public Use
  Company Number: US-PFIZER INC-2018527690

PATIENT
  Age: 76 Year
  Sex: Female

DRUGS (1)
  1. INDERAL LA [Suspect]
     Active Substance: PROPRANOLOL HYDROCHLORIDE
     Indication: Cardiac disorder
     Dosage: 80 MG, ONCE A DAY
     Route: 048

REACTIONS (9)
  - Drug ineffective [Unknown]
  - Malaise [Unknown]
  - Somnolence [Unknown]
  - Asthenia [Unknown]
  - Blood pressure increased [Unknown]
  - Heart rate increased [Unknown]
  - Sedation [Unknown]
  - Hyperhidrosis [Unknown]
  - Dizziness [Unknown]
